FAERS Safety Report 23235426 (Version 2)
Quarter: 2023Q4

REPORT INFORMATION
  Report Type: Spontaneous
  Country: US (occurrence: US)
  Receive Date: 20231128
  Receipt Date: 20231204
  Transmission Date: 20240110
  Serious: Yes (Other)
  Sender: FDA-Public Use
  Company Number: US-PFIZER INC-PV202300102020

PATIENT
  Age: 73 Year
  Sex: Female

DRUGS (1)
  1. IBRANCE [Suspect]
     Active Substance: PALBOCICLIB
     Indication: Breast cancer metastatic
     Dosage: 125 MG, CYCLIC (DAILY ON DAYS 1-21 EVERY 28 DAYS)
     Route: 048

REACTIONS (5)
  - Rheumatoid arthritis [Unknown]
  - Barrett^s oesophagus [Unknown]
  - Trigeminal neuralgia [Unknown]
  - Tachycardia [Unknown]
  - Blood cholesterol abnormal [Unknown]
